FAERS Safety Report 5729369-2 (Version None)
Quarter: 2008Q2

REPORT INFORMATION
  Report Type: 
  Country: None (occurrence: None)
  Receive Date: 20080506
  Receipt Date: 20080424
  Transmission Date: 20081010
  Serious: Yes (Disabling)
  Sender: FDA-Public Use
  Company Number: FR-PFIZER INC-2008037359

PATIENT
  Age: 69 Year
  Sex: Male

DRUGS (3)
  1. LYRICA [Suspect]
     Indication: PAIN IN EXTREMITY
     Route: 048
     Dates: start: 20070801, end: 20071201
  2. PRAMIPEXOLE DIHYDROCHLORIDE [Concomitant]
     Route: 048
  3. SINEMET [Concomitant]
     Route: 048

REACTIONS (1)
  - PARKINSON'S DISEASE [None]
